FAERS Safety Report 4815668-5 (Version None)
Quarter: 2005Q4

REPORT INFORMATION
  Report Type: 
  Country: None (occurrence: None)
  Receive Date: 20051027
  Receipt Date: 20051013
  Transmission Date: 20060501
  Serious: Yes (Hospitalization)
  Sender: FDA-Public Use
  Company Number: 2005RR-00939

PATIENT
  Age: 84 Year
  Sex: Female

DRUGS (15)
  1. CO-AMILOFRUSE                    (FRUSEMIDE) [Suspect]
     Indication: POLYURIA
     Dosage: 40 MG, QD, ORAL
     Route: 048
     Dates: end: 20050921
  2. CO-AMILOFRUSE(AMILORIDE) [Suspect]
     Indication: POLYURIA
     Dosage: 5 MG, QD, ORAL
     Route: 048
     Dates: end: 20050921
  3. DISPERSIBLE ASPIRIN TABLETS [Suspect]
     Indication: ANTIPLATELET THERAPY
     Dosage: 75 MG, ORAL
     Route: 048
     Dates: end: 20050921
  4. ZOPICLONE [Concomitant]
  5. FERROUS SULFATE TAB [Concomitant]
  6. ............. [Concomitant]
  7. ISOSORBIDE MONONITRATE [Concomitant]
  8. MICARDIS [Concomitant]
  9. SIMVASTATIN                                      FILM COATED [Concomitant]
  10. THYROXINE [Concomitant]
  11. OMEPRAZOLE [Concomitant]
  12. BUDESONIDE [Concomitant]
  13. ATROVENT [Concomitant]
  14. GLYCERYL TRINITRATE [Concomitant]
  15. DISTALGESIC [Concomitant]

REACTIONS (2)
  - ELECTROLYTE IMBALANCE [None]
  - HAEMATEMESIS [None]
